FAERS Safety Report 13791939 (Version 2)
Quarter: 2017Q3

REPORT INFORMATION
  Report Type: Spontaneous
  Country: US (occurrence: US)
  Receive Date: 20170725
  Receipt Date: 20170725
  Transmission Date: 20171127
  Serious: No
  Sender: FDA-Public Use
  Company Number: US-ROCHE-669326

PATIENT
  Sex: Female

DRUGS (5)
  1. PLAVIX [Suspect]
     Active Substance: CLOPIDOGREL BISULFATE
     Route: 048
  2. PLAVIX [Suspect]
     Active Substance: CLOPIDOGREL BISULFATE
     Indication: STENT PLACEMENT
     Dosage: FREQUENCY: DAILY, DOSE REPORTED AS 75.
     Route: 048
     Dates: start: 20090409, end: 20090713
  3. SIMVASTATIN. [Concomitant]
     Active Substance: SIMVASTATIN
     Dosage: DOSE: 80, FREQUENCY: DAILY.
     Route: 048
  4. TICLID [Suspect]
     Active Substance: TICLOPIDINE HYDROCHLORIDE
     Indication: STENT PLACEMENT
     Dosage: DOSE: 250
     Route: 048
     Dates: start: 20090713, end: 20090728
  5. METOPROLOL. [Concomitant]
     Active Substance: METOPROLOL
     Dosage: DRUG: METOPROLOL ER 50, DOSE REPORTED AS 50.
     Route: 048

REACTIONS (3)
  - Nausea [Not Recovered/Not Resolved]
  - Drug intolerance [Unknown]
  - Dysgeusia [Not Recovered/Not Resolved]
